FAERS Safety Report 8027117-7 (Version None)
Quarter: 2012Q1

REPORT INFORMATION
  Report Type: 
  Country: None (occurrence: None)
  Receive Date: 20120106
  Receipt Date: 20120103
  Transmission Date: 20120608
  Serious: Yes (Death, Hospitalization)
  Sender: FDA-Public Use
  Company Number: PHHY2011DE110172

PATIENT
  Sex: Male
  Weight: 70 kg

DRUGS (8)
  1. DIOVAN HCT [Suspect]
     Route: 048
  2. NEBIVOLOL HCL [Concomitant]
     Dosage: 5 MG, PER DAY
     Route: 048
     Dates: start: 20110101
  3. DIOVAN HCT [Suspect]
     Dates: start: 20100209
  4. DIOVAN [Suspect]
     Dosage: 160 MG/DAY
     Route: 048
     Dates: start: 20090209
  5. PLATELET AGGREGATION INHIBITORS [Concomitant]
  6. RASILEZ [Suspect]
     Indication: HYPERTENSION
     Dosage: 150 MG/DAY
     Route: 048
     Dates: start: 20090209
  7. DIOVAN HCT [Suspect]
     Dates: start: 20090209
  8. BETA BLOCKING AGENTS [Concomitant]

REACTIONS (1)
  - RENAL CELL CARCINOMA [None]
